FAERS Safety Report 11167446 (Version 1)
Quarter: 2015Q2

REPORT INFORMATION
  Report Type: Spontaneous
  Country: GB (occurrence: GB)
  Receive Date: 20150605
  Receipt Date: 20150605
  Transmission Date: 20150821
  Serious: Yes (Other)
  Sender: FDA-Public Use
  Company Number: GB-TEVA-567031ACC

PATIENT
  Age: 43 Year
  Sex: Female
  Weight: 90 kg

DRUGS (2)
  1. LANSOPRAZOL [Concomitant]
     Active Substance: LANSOPRAZOLE
  2. ALENDRONIC ACID [Suspect]
     Active Substance: ALENDRONIC ACID
     Indication: OSTEOARTHRITIS
     Dosage: 40 MILLIGRAM DAILY;
     Route: 048
     Dates: start: 20150514, end: 20150518

REACTIONS (4)
  - Dizziness [Not Recovered/Not Resolved]
  - Rash [Not Recovered/Not Resolved]
  - Miosis [Recovering/Resolving]
  - Oral pain [Recovered/Resolved]

NARRATIVE: CASE EVENT DATE: 20150514
